FAERS Safety Report 8017282-X (Version None)
Quarter: 2012Q1

REPORT INFORMATION
  Report Type: 
  Country: None (occurrence: None)
  Receive Date: 20120102
  Receipt Date: 20111229
  Transmission Date: 20120608
  Serious: Yes (Other)
  Sender: FDA-Public Use
  Company Number: PHEH2011US03394

PATIENT
  Sex: Female
  Weight: 135 kg

DRUGS (7)
  1. GILENYA [Suspect]
     Dosage: 0.5 MG, QD
     Route: 048
     Dates: start: 20110830, end: 20111021
  2. CALCIUM 600 TAB + D [Concomitant]
     Dosage: 600 MG, UNK
     Dates: start: 20111101
  3. GILENYA [Suspect]
     Dosage: 0.5 MG, QD
     Route: 048
     Dates: start: 20111117
  4. GILENYA [Suspect]
     Indication: MULTIPLE SCLEROSIS
     Dosage: 0.5 MG, QD
     Route: 048
     Dates: start: 20110801
  5. GILENYA [Suspect]
     Dosage: 0.5 MG, QD
     Route: 048
  6. VITAMIN D [Concomitant]
     Dosage: 1000 U, UNK
     Dates: start: 20111101
  7. NAPROXEN (ALEVE) [Concomitant]
     Dosage: 220 MG, UNK

REACTIONS (10)
  - HEADACHE [None]
  - PRURITUS [None]
  - INAPPROPRIATE SCHEDULE OF DRUG ADMINISTRATION [None]
  - ERYTHEMA [None]
  - RASH PRURITIC [None]
  - SWELLING [None]
  - ANGIOEDEMA [None]
  - RASH GENERALISED [None]
  - URTICARIA [None]
  - FATIGUE [None]
